FAERS Safety Report 9242491 (Version 1)
Quarter: 2013Q2

REPORT INFORMATION
  Report Type: Spontaneous
  Country: JP (occurrence: JP)
  Receive Date: 20130419
  Receipt Date: 20130419
  Transmission Date: 20140414
  Serious: Yes (Death)
  Sender: FDA-Public Use
  Company Number: JP-ROXANE LABORATORIES, INC.-2013-RO-00487RO

PATIENT
  Sex: Male
  Weight: 63 kg

DRUGS (1)
  1. TRIAZOLAM [Suspect]
     Indication: INSOMNIA

REACTIONS (1)
  - Overdose [Fatal]
